FAERS Safety Report 22039885 (Version 1)
Quarter: 2023Q1

REPORT INFORMATION
  Report Type: Spontaneous
  Country: US (occurrence: None)
  Receive Date: 20230224
  Receipt Date: 20230224
  Transmission Date: 20230418
  Serious: Yes (Other)
  Sender: FDA-Public Use
  Company Number: None

PATIENT
  Age: 23 Year
  Sex: Male

DRUGS (7)
  1. AMBRISENTAN [Suspect]
     Active Substance: AMBRISENTAN
     Indication: Pulmonary arterial hypertension
     Dosage: FREQUENCY : DAILY;?
     Route: 048
     Dates: start: 20220926
  2. AMLODIPINE [Concomitant]
  3. CLONIDINE [Concomitant]
  4. ENALAPRIL [Concomitant]
  5. CARVEDILOL [Concomitant]
     Active Substance: CARVEDILOL
  6. CINACALCET [Concomitant]
  7. RENVELA [Concomitant]

REACTIONS (5)
  - Dyspnoea [None]
  - Hypervolaemia [None]
  - Weight increased [None]
  - Haemodialysis [None]
  - Arteriovenous fistula site haemorrhage [None]

NARRATIVE: CASE EVENT DATE: 20230129
